FAERS Safety Report 8187092-1 (Version None)
Quarter: 2012Q1

REPORT INFORMATION
  Report Type: 
  Country: None (occurrence: None)
  Receive Date: 20120306
  Receipt Date: 20120227
  Transmission Date: 20120608
  Serious: Yes (Hospitalization, Other)
  Sender: FDA-Public Use
  Company Number: MX-SANOFI-AVENTIS-2012SA008621

PATIENT
  Age: 50 Year
  Sex: Female
  Weight: 85 kg

DRUGS (7)
  1. KETOPROFEN [Suspect]
     Route: 048
     Dates: start: 20120214
  2. SYDOLIL [Concomitant]
     Indication: MIGRAINE
     Dosage: STRENGTH: 1MG+50MG+400MG
     Route: 048
     Dates: start: 20100101
  3. LANTUS [Suspect]
     Route: 058
     Dates: start: 20120214
  4. LANTUS [Suspect]
     Indication: TYPE 2 DIABETES MELLITUS
     Route: 058
     Dates: start: 20100101, end: 20110101
  5. KETOPROFEN [Suspect]
     Indication: MIGRAINE
     Route: 048
     Dates: start: 20120101, end: 20120213
  6. GLIMEPIRIDE [Concomitant]
     Indication: TYPE 2 DIABETES MELLITUS
     Route: 048
     Dates: start: 20100101, end: 20120208
  7. LANTUS [Suspect]
     Route: 058
     Dates: start: 20110901, end: 20120213

REACTIONS (6)
  - FALL [None]
  - FACE INJURY [None]
  - HYPERGLYCAEMIA [None]
  - WOUND DEHISCENCE [None]
  - MIGRAINE [None]
  - INJURY [None]
